FAERS Safety Report 21019538 (Version 10)
Quarter: 2025Q3

REPORT INFORMATION
  Report Type: Spontaneous
  Country: US (occurrence: US)
  Receive Date: 20220628
  Receipt Date: 20250812
  Transmission Date: 20251020
  Serious: Yes (Hospitalization, Disabling, Other)
  Sender: SANOFI AVENTIS
  Company Number: US-SA-SAC20220627001473

PATIENT
  Age: 54 Year
  Sex: Female
  Weight: 111.5 kg

DRUGS (22)
  1. DUPIXENT [Suspect]
     Active Substance: DUPILUMAB
     Indication: Asthma
     Dosage: 300 MG, QOW
     Route: 058
  2. DUPIXENT [Suspect]
     Active Substance: DUPILUMAB
     Indication: Asthma
     Dosage: 300 MG, QOW
  3. DUPIXENT [Suspect]
     Active Substance: DUPILUMAB
     Dosage: 300 MG, QOW
     Route: 058
  4. GLASSIA [Concomitant]
     Active Substance: .ALPHA.1-PROTEINASE INHIBITOR HUMAN
  5. METHOTREXATE [Concomitant]
     Active Substance: METHOTREXATE
  6. DIPHENHYDRAMINE [Concomitant]
     Active Substance: DIPHENHYDRAMINE
  7. LIDOCAINE [Concomitant]
     Active Substance: LIDOCAINE
  8. EPINEPHRINE [Concomitant]
     Active Substance: EPINEPHRINE
  9. MODERNA COVID-19 VACCINE [Concomitant]
     Active Substance: ELASOMERAN
     Indication: Immunisation
  10. PREDNISONE [Concomitant]
     Active Substance: PREDNISONE
  11. AZITHROMYCIN [Concomitant]
     Active Substance: AZITHROMYCIN
  12. ARMODAFINIL [Concomitant]
     Active Substance: ARMODAFINIL
  13. CYMBALTA [Concomitant]
     Active Substance: DULOXETINE HYDROCHLORIDE
  14. DULERA [Concomitant]
     Active Substance: FORMOTEROL FUMARATE DIHYDRATE\MOMETASONE FUROATE
  15. ACETAMINOPHEN\HYDROCODONE [Concomitant]
     Active Substance: ACETAMINOPHEN\HYDROCODONE
  16. OMEPRAZOLE [Concomitant]
     Active Substance: OMEPRAZOLE
  17. METOPROLOL SUCCINATE [Concomitant]
     Active Substance: METOPROLOL SUCCINATE
  18. OXYCONTIN [Concomitant]
     Active Substance: OXYCODONE HYDROCHLORIDE
  19. ALBUTEROL SULFATE [Concomitant]
     Active Substance: ALBUTEROL SULFATE
  20. HUMIRA [Concomitant]
     Active Substance: ADALIMUMAB
  21. SODIUM CHLORIDE [Concomitant]
     Active Substance: SODIUM CHLORIDE
  22. TEZSPIRE [Concomitant]
     Active Substance: TEZEPELUMAB-EKKO

REACTIONS (15)
  - Arthralgia [Recovering/Resolving]
  - Cellulitis [Unknown]
  - Loss of personal independence in daily activities [Unknown]
  - Rheumatoid arthritis [Unknown]
  - Fluid retention [Unknown]
  - Oedema peripheral [Unknown]
  - Oedema [Unknown]
  - Productive cough [Unknown]
  - Dyspnoea exertional [Unknown]
  - Pain [Unknown]
  - Osteoarthritis [Unknown]
  - Pain in extremity [Unknown]
  - Nasopharyngitis [Unknown]
  - Back pain [Unknown]
  - Procedural pain [Unknown]

NARRATIVE: CASE EVENT DATE: 20220101
